FAERS Safety Report 6397346-7 (Version None)
Quarter: 2009Q4

REPORT INFORMATION
  Report Type: 
  Country: None (occurrence: None)
  Receive Date: 20091012
  Receipt Date: 20090928
  Transmission Date: 20100525
  Serious: Yes (Hospitalization, Other)
  Sender: FDA-Public Use
  Company Number: GB-GENENTECH-291571

PATIENT

DRUGS (5)
  1. MABTHERA [Suspect]
     Indication: WEGENER'S GRANULOMATOSIS
     Dosage: 375 MG/M2, 1/WEEK
     Route: 065
  2. MYCOPHENOLATE MOFETIL [Suspect]
     Indication: PROPHYLAXIS
     Route: 065
  3. HYDROCORTISONE [Suspect]
     Indication: PROPHYLAXIS
     Dosage: 100 MG, UNK
     Route: 042
  4. CHLORPHENIRAMINE MALEATE [Suspect]
     Indication: PROPHYLAXIS
     Dosage: 10 MG, UNK
     Route: 065
  5. PARACETAMOL [Suspect]
     Indication: PROPHYLAXIS
     Dosage: 1000 MG, UNK
     Route: 048

REACTIONS (14)
  - BREAST CANCER [None]
  - HYPERSENSITIVITY [None]
  - INFECTION [None]
  - INFUSION RELATED REACTION [None]
  - LEUKOPENIA [None]
  - LOWER RESPIRATORY TRACT INFECTION [None]
  - LYMPHOPENIA [None]
  - MYOCARDIAL INFARCTION [None]
  - NEUTROPENIA [None]
  - RECURRENT CANCER [None]
  - RENAL FAILURE [None]
  - SQUAMOUS CELL CARCINOMA [None]
  - TYPE IV HYPERSENSITIVITY REACTION [None]
  - WEGENER'S GRANULOMATOSIS [None]
